FAERS Safety Report 4579493-5 (Version None)
Quarter: 2005Q1

REPORT INFORMATION
  Report Type: 
  Country: None (occurrence: None)
  Receive Date: 20050209
  Receipt Date: 20050127
  Transmission Date: 20050727
  Serious: Yes (Other)
  Sender: FDA-Public Use
  Company Number: 2005023867

PATIENT
  Age: 50 Year
  Sex: Male

DRUGS (2)
  1. TAHOR (ATORVASTATIN) [Suspect]
     Indication: HYPERCHOLESTEROLAEMIA
     Dates: end: 20050101
  2. QUINOLONE ANTIBACTERIALS (QUINOLONE ANTIBACTERIALS) [Suspect]
     Dates: start: 20041101, end: 20041101

REACTIONS (2)
  - TENDON RUPTURE [None]
  - TENDONITIS [None]
